FAERS Safety Report 5825913-5 (Version None)
Quarter: 2008Q3

REPORT INFORMATION
  Report Type: 
  Country: None (occurrence: None)
  Receive Date: 20080723
  Receipt Date: 20080707
  Transmission Date: 20090109
  Serious: Yes (Hospitalization)
  Sender: FDA-Public Use
  Company Number: 2008S1006270

PATIENT
  Age: 45 Year
  Sex: Male

DRUGS (9)
  1. AZATHIOPRINE [Suspect]
     Indication: IMMUNOSUPPRESSION
     Dosage: 150 MG;DAILY
  2. AZATHIOPRINE [Suspect]
     Indication: VASCULITIS
     Dosage: 150 MG;DAILY
  3. AZATHIOPRINE [Suspect]
     Indication: WEGENER'S GRANULOMATOSIS
     Dosage: 150 MG;DAILY
  4. PREDNISONE [Concomitant]
  5. ATORVASTATIN CALCIUM [Concomitant]
  6. CALCICHEW /00108001/ (CALCIUM CARBONATE) [Concomitant]
  7. CO-TRIMOXAZOLE (CO-TRIMOXAZOLE) [Concomitant]
  8. IRBESARTAN [Concomitant]
  9. OMEPRAZOLE [Concomitant]

REACTIONS (7)
  - ANAEMIA [None]
  - CHILLS [None]
  - HYPOTENSION [None]
  - NEUTROPHILIA [None]
  - PERIPHERAL COLDNESS [None]
  - RENAL IMPAIRMENT [None]
  - TUBULOINTERSTITIAL NEPHRITIS [None]
